FAERS Safety Report 18010210 (Version 1)
Quarter: 2020Q3

REPORT INFORMATION
  Report Type: Spontaneous
  Country: US (occurrence: US)
  Receive Date: 20200710
  Receipt Date: 20200710
  Transmission Date: 20201103
  Serious: Yes (Hospitalization)
  Sender: FDA-Public Use
  Company Number: US-LYNE LABORATORIES INC.-2087242

PATIENT
  Age: 20 Year
  Sex: Female
  Weight: 54.55 kg

DRUGS (4)
  1. UNSPECIFIED INSULIN [Concomitant]
     Active Substance: INSULIN NOS
  2. UNSPECIFIED INCONTINENCE MEDICATION [Concomitant]
  3. LEVOCARNITINE. [Suspect]
     Active Substance: LEVOCARNITINE
     Indication: HYPERGLYCINAEMIA
     Route: 048
  4. UNSPECIFIED BLOOD PRESSURE MEDICATIONS [Concomitant]
     Active Substance: UNSPECIFIED INGREDIENT

REACTIONS (2)
  - Blood glucose decreased [Unknown]
  - Blood glucose increased [Unknown]
